FAERS Safety Report 12708971 (Version 2)
Quarter: 2016Q3

REPORT INFORMATION
  Report Type: Spontaneous
  Country: US (occurrence: US)
  Receive Date: 20160901
  Receipt Date: 20160923
  Transmission Date: 20161109
  Serious: No
  Sender: FDA-Public Use
  Company Number: US-JAZZ-2016-US-008399

PATIENT
  Age: 13 Year
  Sex: Female

DRUGS (11)
  1. XYREM [Suspect]
     Active Substance: SODIUM OXYBATE
     Indication: CATAPLEXY
     Dosage: DOSE ADJUSTMENTS
     Route: 048
  2. XYREM [Suspect]
     Active Substance: SODIUM OXYBATE
     Dosage: 3.75 G, BID
     Route: 048
     Dates: start: 201604, end: 2016
  3. XYREM [Suspect]
     Active Substance: SODIUM OXYBATE
     Dosage: 4 G, SECOND DOSE
     Route: 048
     Dates: start: 201609
  4. FLONASE [Concomitant]
     Active Substance: FLUTICASONE PROPIONATE
  5. PROZAC [Concomitant]
     Active Substance: FLUOXETINE HYDROCHLORIDE
  6. MODAFINIL. [Concomitant]
     Active Substance: MODAFINIL
  7. NUVIGIL [Concomitant]
     Active Substance: ARMODAFINIL
  8. XYREM [Suspect]
     Active Substance: SODIUM OXYBATE
     Dosage: 4.5 G, FIRST DOSE
     Route: 048
     Dates: start: 201609
  9. LUPRON [Concomitant]
     Active Substance: LEUPROLIDE ACETATE
  10. FLINTSTONES [Concomitant]
  11. XYREM [Suspect]
     Active Substance: SODIUM OXYBATE
     Indication: NARCOLEPSY
     Dosage: 1 G, BID
     Route: 048
     Dates: start: 201108, end: 201109

REACTIONS (12)
  - Fall [Recovered/Resolved]
  - Intentional product misuse [Unknown]
  - Somnambulism [Unknown]
  - Hunger [Not Recovered/Not Resolved]
  - Weight increased [Unknown]
  - Unevaluable event [Unknown]
  - Head injury [Unknown]
  - Wrong technique in product usage process [Unknown]
  - Poor quality sleep [Unknown]
  - Somnolence [Not Recovered/Not Resolved]
  - Therapeutic response decreased [Unknown]
  - Sleep-related eating disorder [Not Recovered/Not Resolved]

NARRATIVE: CASE EVENT DATE: 201909
